FAERS Safety Report 8299345-7 (Version None)
Quarter: 2012Q2

REPORT INFORMATION
  Report Type: 
  Country: None (occurrence: None)
  Receive Date: 20120419
  Receipt Date: 20120412
  Transmission Date: 20120825
  Serious: Yes (Hospitalization)
  Sender: FDA-Public Use
  Company Number: US-ROCHE-1040225

PATIENT
  Sex: Male

DRUGS (1)
  1. ZELBORAF [Suspect]
     Indication: PRODUCT USED FOR UNKNOWN INDICATION
     Route: 065

REACTIONS (12)
  - MELANOCYTIC NAEVUS [None]
  - PRURITUS [None]
  - FALL [None]
  - FATIGUE [None]
  - HEADACHE [None]
  - HYPOTENSION [None]
  - SUNBURN [None]
  - ERYTHEMA [None]
  - DECREASED APPETITE [None]
  - MYALGIA [None]
  - ARTHRALGIA [None]
  - MASS [None]
